FAERS Safety Report 8682652 (Version 5)
Quarter: 2013Q2

REPORT INFORMATION
  Report Type: Report from Study
  Country: CA (occurrence: CA)
  Receive Date: 20120725
  Receipt Date: 20130422
  Transmission Date: 20140414
  Serious: Yes (Hospitalization)
  Sender: FDA-Public Use
  Company Number: CA-TEVA-350073USA

PATIENT
  Age: 90 Year
  Sex: Male
  Weight: 66 kg

DRUGS (8)
  1. TREANDA [Suspect]
     Indication: NON-HODGKIN^S LYMPHOMA UNSPECIFIED HISTOLOGY INDOLENT
     Route: 042
     Dates: start: 20120523, end: 20120524
  2. CITALOPRAM [Concomitant]
     Indication: ANTIDEPRESSANT THERAPY
     Dosage: 20 MILLIGRAM DAILY;
     Route: 048
     Dates: start: 20081017
  3. WARFARIN [Concomitant]
     Indication: ATRIAL FIBRILLATION
     Dosage: 3 MILLIGRAM DAILY;
     Route: 048
     Dates: start: 20080820, end: 20120710
  4. CENTRUM [Concomitant]
     Indication: PROPHYLAXIS
     Dosage: 1 DOSAGE FORMS DAILY;
     Route: 048
     Dates: start: 20080820
  5. SYMBICORT [Concomitant]
     Indication: PULMONARY OEDEMA
     Dosage: 500 MICROGRAM DAILY; 1-2
     Route: 055
     Dates: start: 20081128
  6. STEMETIL [Concomitant]
     Indication: PROPHYLAXIS OF NAUSEA AND VOMITING
     Route: 048
     Dates: start: 20120523
  7. VITAMIN B12 [Concomitant]
     Indication: PROPHYLAXIS
     Dosage: 33.3333 MICROGRAM DAILY;
     Route: 030
     Dates: start: 20090507
  8. TERAZOSIN [Concomitant]
     Indication: PROSTATIC DISORDER
     Dosage: 1 MILLIGRAM DAILY;
     Route: 048
     Dates: end: 20120607

REACTIONS (1)
  - Syncope [Recovered/Resolved]
